FAERS Safety Report 6766839-2 (Version None)
Quarter: 2010Q2

REPORT INFORMATION
  Report Type: 
  Country: None (occurrence: None)
  Receive Date: 20100611
  Receipt Date: 20100601
  Transmission Date: 20101027
  Serious: Yes (Other)
  Sender: FDA-Public Use
  Company Number: IE-MEDIMMUNE-MEDI-0009929

PATIENT
  Sex: Male

DRUGS (5)
  1. SYNAGIS [Suspect]
     Route: 030
     Dates: start: 20091015, end: 20091208
  2. SYNAGIS [Suspect]
     Dates: start: 20100101, end: 20100202
  3. SALBUTAMOL [Concomitant]
     Route: 055
  4. FERROUS SULFATE TAB [Concomitant]
  5. KAPSOVIT [Concomitant]

REACTIONS (2)
  - H1N1 INFLUENZA [None]
  - PYREXIA [None]
